FAERS Safety Report 6485904-0 (Version None)
Quarter: 2009Q4

REPORT INFORMATION
  Report Type: 
  Country: None (occurrence: None)
  Receive Date: 20091204
  Receipt Date: 20091126
  Transmission Date: 20100525
  Serious: Yes (Hospitalization)
  Sender: FDA-Public Use
  Company Number: 443138

PATIENT
  Age: 31 Year
  Sex: Female

DRUGS (10)
  1. ATROPINE [Suspect]
     Indication: HYPOTENSION
     Dosage: . 8 MG, INTRAVENOUS
     Route: 042
  2. ATROPINE [Suspect]
     Indication: SINUS BRADYCARDIA
     Dosage: . 8 MG, INTRAVENOUS
     Route: 042
  3. (EPHEDRINE) [Suspect]
     Indication: HYPOTENSION
     Dosage: 50 MG, INTRAVENOUS
     Route: 042
  4. (EPHEDRINE) [Suspect]
     Indication: SINUS BRADYCARDIA
     Dosage: 50 MG, INTRAVENOUS
     Route: 042
  5. (PHENYLEPHNINE) [Suspect]
     Indication: HYPOTENSION
     Dosage: INTRAVENOUS DRIP
     Route: 041
  6. BUPIVACAINE [Concomitant]
  7. FENTANYL-100 [Concomitant]
  8. MORPHINE [Concomitant]
  9. (NITROUS OXIDE) [Concomitant]
  10. SEVOFLURANE [Concomitant]

REACTIONS (6)
  - ANXIETY [None]
  - BLINDNESS [None]
  - CHEST DISCOMFORT [None]
  - SINUS TACHYCARDIA [None]
  - STRESS CARDIOMYOPATHY [None]
  - SYNCOPE [None]
